FAERS Safety Report 7294664-5 (Version None)
Quarter: 2011Q1

REPORT INFORMATION
  Report Type: 
  Country: None (occurrence: None)
  Receive Date: 20110204
  Receipt Date: 20110127
  Transmission Date: 20110831
  Serious: Yes (Hospitalization)
  Sender: FDA-Public Use
  Company Number: 1000018637

PATIENT
  Age: 73 Year
  Sex: Female

DRUGS (2)
  1. CELEBREX [Concomitant]
  2. BYSTOLIC [Suspect]
     Indication: HYPERTENSION
     Dosage: 5 MG (5 MG, 1 IN 1 D), ORAL
     Route: 048
     Dates: start: 20101214, end: 20110114

REACTIONS (4)
  - CARDIAC FAILURE CONGESTIVE [None]
  - HEART RATE DECREASED [None]
  - BRONCHITIS [None]
  - SINUSITIS [None]
